FAERS Safety Report 4718340-5 (Version None)
Quarter: 2005Q3

REPORT INFORMATION
  Report Type: 
  Country: None (occurrence: None)
  Receive Date: 20050718
  Receipt Date: 20041118
  Transmission Date: 20060218
  Serious: Yes (Other)
  Sender: FDA-Public Use
  Company Number: 240635

PATIENT
  Age: 56 Year
  Sex: Female

DRUGS (2)
  1. ACTIVELLA [Suspect]
     Indication: HORMONE REPLACEMENT THERAPY
     Dates: start: 20011001, end: 20021001
  2. PREMPRO [Concomitant]

REACTIONS (1)
  - BREAST CANCER [None]
